FAERS Safety Report 4331981-2 (Version None)
Quarter: 2004Q2

REPORT INFORMATION
  Report Type: 
  Country: None (occurrence: None)
  Receive Date: 20040405
  Receipt Date: 20030904
  Transmission Date: 20050107
  Serious: No
  Sender: FDA-Public Use
  Company Number: US-GLAXOSMITHKLINE-A0424696A

PATIENT
  Age: 60 Year
  Sex: Male

DRUGS (4)
  1. SEREVENT [Suspect]
     Indication: PULMONARY FIBROSIS
     Dosage: 2PUFF TWICE PER DAY
     Route: 055
  2. VENTOLIN [Suspect]
     Dosage: 2PUFF TWICE PER DAY
     Route: 055
  3. AZMACORT [Concomitant]
  4. VERAPAMIL [Concomitant]

REACTIONS (3)
  - BLOOD PRESSURE INCREASED [None]
  - HEADACHE [None]
  - HEART RATE INCREASED [None]
